FAERS Safety Report 19965333 (Version 1)
Quarter: 2021Q4

REPORT INFORMATION
  Report Type: Spontaneous
  Country: FR (occurrence: FR)
  Receive Date: 20211018
  Receipt Date: 20211018
  Transmission Date: 20220303
  Serious: Yes (Congenital Anomaly, Other)
  Sender: FDA-Public Use
  Company Number: FR-ABBVIE-21K-056-4117824-00

PATIENT
  Sex: Male

DRUGS (2)
  1. VALPROATE SODIUM [Suspect]
     Active Substance: VALPROATE SODIUM
     Indication: Maternal exposure timing unspecified
     Route: 064
  2. FOLIC ACID [Concomitant]
     Active Substance: FOLIC ACID
     Indication: Product used for unknown indication

REACTIONS (36)
  - Ear infection [Unknown]
  - Cardiac murmur [Unknown]
  - Scar [Unknown]
  - Asthma [Unknown]
  - Hypoacusis [Unknown]
  - Electroencephalogram abnormal [Unknown]
  - Fallot^s tetralogy [Unknown]
  - Neonatal respiratory distress [Unknown]
  - Pulmonary aplasia [Unknown]
  - Autism spectrum disorder [Unknown]
  - Epilepsy [Unknown]
  - Ventricular septal defect [Unknown]
  - Developmental coordination disorder [Unknown]
  - Hypoxia [Unknown]
  - Learning disorder [Unknown]
  - Disturbance in attention [Unknown]
  - Disturbance in social behaviour [Unknown]
  - Frustration tolerance decreased [Unknown]
  - Hyperventilation [Unknown]
  - Language disorder [Unknown]
  - Cryptorchism [Unknown]
  - Disorientation [Unknown]
  - Reading disorder [Unknown]
  - Dysgraphia [Unknown]
  - Communication disorder [Unknown]
  - Scoliosis [Unknown]
  - Lordosis [Unknown]
  - Language disorder [Unknown]
  - Lip disorder [Unknown]
  - Dysmorphism [Unknown]
  - Congenital cardiovascular anomaly [Unknown]
  - Vocal cord disorder [Unknown]
  - Foot deformity [Unknown]
  - Impaired reasoning [Unknown]
  - Dysmetria [Unknown]
  - Foetal exposure during pregnancy [Unknown]
